FAERS Safety Report 14193327 (Version 1)
Quarter: 2017Q4

REPORT INFORMATION
  Report Type: Spontaneous
  Country: ES (occurrence: ES)
  Receive Date: 20171116
  Receipt Date: 20171116
  Transmission Date: 20180321
  Serious: Yes (Other)
  Sender: FDA-Public Use
  Company Number: ES-ACCORD-061081

PATIENT
  Age: 64 Year
  Sex: Male

DRUGS (4)
  1. QUETIAPINE ACCORD [Suspect]
     Active Substance: QUETIAPINE
     Indication: PRODUCT USED FOR UNKNOWN INDICATION
     Dosage: STRENGTH: 50 MG, EFG 60, 2 TABLETS
     Route: 048
     Dates: start: 20171024, end: 20171024
  2. PRAVASTATIN. [Interacting]
     Active Substance: PRAVASTATIN
     Indication: PRODUCT USED FOR UNKNOWN INDICATION
     Dosage: STRENGTH: 10 MG
     Route: 048
     Dates: start: 20171024, end: 20171024
  3. RIVASTIGMINE/RIVASTIGMINE TARTRATE [Interacting]
     Active Substance: RIVASTIGMINE
     Indication: PRODUCT USED FOR UNKNOWN INDICATION
     Dosage: STRENGTH: 4.5 MG
     Route: 065
     Dates: start: 20171024, end: 20171024
  4. DUODART GLAXOSMITHKLINE, S.A. [Interacting]
     Active Substance: DUTASTERIDE\TAMSULOSIN HYDROCHLORIDE
     Indication: PRODUCT USED FOR UNKNOWN INDICATION
     Dosage: STRENGTH: 0.5/0.4 MG, 30 CAPSULES
     Route: 048
     Dates: start: 20171024, end: 20171024

REACTIONS (3)
  - Hypotension [Recovered/Resolved]
  - Wrong patient received medication [Unknown]
  - Drug interaction [Unknown]

NARRATIVE: CASE EVENT DATE: 20171024
